FAERS Safety Report 9303705 (Version 1)
Quarter: 2013Q2

REPORT INFORMATION
  Report Type: Spontaneous
  Country: FR (occurrence: FR)
  Receive Date: 20130522
  Receipt Date: 20130522
  Transmission Date: 20140414
  Serious: Yes (Hospitalization)
  Sender: FDA-Public Use
  Company Number: FR-ASTRAZENECA-2013SE33793

PATIENT
  Age: 63 Year
  Sex: Male

DRUGS (13)
  1. INEXIUM [Suspect]
     Route: 048
     Dates: start: 20130327, end: 20130403
  2. TAZOCILLINE [Suspect]
     Dosage: 4G/500MG THREE TIMES A DAY
     Route: 042
     Dates: start: 20130327, end: 20130402
  3. CIFLOX [Suspect]
     Dosage: 400 MG/2 ML THREE TIMES A DAY
     Route: 042
     Dates: start: 20130327
  4. CIFLOX [Suspect]
     Route: 048
     Dates: start: 20130329, end: 20130403
  5. TOPALGIC [Concomitant]
  6. KARDEGIC [Concomitant]
  7. CORTANCYL [Concomitant]
  8. INIPOMP [Concomitant]
  9. ILAST [Concomitant]
     Route: 047
  10. LACRIFLUID [Concomitant]
     Route: 047
  11. DEXAFREE [Concomitant]
     Route: 047
  12. STERDEX [Concomitant]
     Route: 047
  13. LOVENOX [Concomitant]
     Route: 042
     Dates: start: 20130328

REACTIONS (3)
  - Lymphopenia [Recovered/Resolved]
  - Leukopenia [Recovered/Resolved]
  - Neutropenia [Recovered/Resolved]
